FAERS Safety Report 8162986-1 (Version None)
Quarter: 2012Q1

REPORT INFORMATION
  Report Type: 
  Country: None (occurrence: None)
  Receive Date: 20120224
  Receipt Date: 20111201
  Transmission Date: 20120608
  Serious: No
  Sender: FDA-Public Use
  Company Number: US-GLAXOSMITHKLINE-A0956227A

PATIENT

DRUGS (1)
  1. ARZERRA [Suspect]

REACTIONS (1)
  - INFUSION RELATED REACTION [None]
